FAERS Safety Report 10055493 (Version 1)
Quarter: 2014Q2

REPORT INFORMATION
  Report Type: Spontaneous
  Country: MX (occurrence: MX)
  Receive Date: 20140403
  Receipt Date: 20140403
  Transmission Date: 20141212
  Serious: Yes (Other)
  Sender: FDA-Public Use
  Company Number: MX-009507513-1404MEX000025

PATIENT
  Sex: Female

DRUGS (1)
  1. IMPLANON [Suspect]
     Indication: CONTRACEPTION
     Dosage: 60-70MCG/D WK 5-6, 35-45MCG/D END OF 1ST YR, 30-40MCG/D END OF 2ND YR, 25-30MCG/D END OF 3RD YR
     Route: 059

REACTIONS (1)
  - Anaphylactic shock [Unknown]
